FAERS Safety Report 16305458 (Version 1)
Quarter: 2019Q2

REPORT INFORMATION
  Report Type: Report from Study
  Country: US (occurrence: US)
  Receive Date: 20190513
  Receipt Date: 20190513
  Transmission Date: 20190711
  Serious: Yes (Other)
  Sender: FDA-Public Use
  Company Number: US-JNJFOC-20190108909

PATIENT
  Sex: Male

DRUGS (18)
  1. LIPITOR [Concomitant]
     Active Substance: ATORVASTATIN CALCIUM
  2. CARAFATE [Concomitant]
     Active Substance: SUCRALFATE
  3. COMPAZINE [Concomitant]
     Active Substance: PROCHLORPERAZINE MALEATE
  4. ELIQUIS [Concomitant]
     Active Substance: APIXABAN
  5. IMBRUVICA [Suspect]
     Active Substance: IBRUTINIB
     Indication: MANTLE CELL LYMPHOMA
     Route: 048
     Dates: start: 20181001
  6. HYDROCORTISONE. [Concomitant]
     Active Substance: HYDROCORTISONE
  7. TERAZOSIN [Concomitant]
     Active Substance: TERAZOSIN\TERAZOSIN HYDROCHLORIDE
  8. METOPROLOL SUCCINATE. [Concomitant]
     Active Substance: METOPROLOL SUCCINATE
  9. LISINOPRIL. [Concomitant]
     Active Substance: LISINOPRIL
  10. BENADRYL [Concomitant]
     Active Substance: DIPHENHYDRAMINE HYDROCHLORIDE
  11. OMEPRAZOLE. [Concomitant]
     Active Substance: OMEPRAZOLE
  12. NIFEDIPINE. [Concomitant]
     Active Substance: NIFEDIPINE
  13. FINASTERIDE. [Concomitant]
     Active Substance: FINASTERIDE
  14. JANUVIA [Concomitant]
     Active Substance: SITAGLIPTIN PHOSPHATE
  15. KYTRIL [Concomitant]
     Active Substance: GRANISETRON HYDROCHLORIDE
  16. BENDEKA [Concomitant]
     Active Substance: BENDAMUSTINE HYDROCHLORIDE
  17. EPINEPHRINE. [Concomitant]
     Active Substance: EPINEPHRINE
  18. DEXAMETHASONE. [Concomitant]
     Active Substance: DEXAMETHASONE

REACTIONS (5)
  - Epistaxis [Unknown]
  - Middle ear effusion [Unknown]
  - Hypoacusis [Unknown]
  - Nasopharyngitis [Unknown]
  - Ear haemorrhage [Not Recovered/Not Resolved]

NARRATIVE: CASE EVENT DATE: 2018
